FAERS Safety Report 23899189 (Version 1)
Quarter: 2024Q2

REPORT INFORMATION
  Report Type: Spontaneous
  Country: US (occurrence: US)
  Receive Date: 20240526
  Receipt Date: 20240526
  Transmission Date: 20240716
  Serious: Yes (Hospitalization, Other)
  Sender: FDA-Public Use
  Company Number: US-DRL-USA-LIT/USA/24/0007512

PATIENT
  Age: 64 Year
  Sex: Male

DRUGS (2)
  1. PEMETREXED [Suspect]
     Active Substance: PEMETREXED
     Indication: Lung adenocarcinoma
  2. pemetrexed/carboplatin [Concomitant]
     Indication: Lung adenocarcinoma

REACTIONS (4)
  - Acute kidney injury [Recovered/Resolved]
  - Renal tubular necrosis [Recovered/Resolved]
  - Hyperkalaemia [Unknown]
  - Hypoglycaemia [Unknown]
